FAERS Safety Report 9252773 (Version 1)
Quarter: 2013Q2

REPORT INFORMATION
  Report Type: Spontaneous
  Country: SE (occurrence: SE)
  Receive Date: 20130424
  Receipt Date: 20130424
  Transmission Date: 20140414
  Serious: Yes (Other)
  Sender: FDA-Public Use
  Company Number: SE-JNJFOC-20130409750

PATIENT
  Age: 49 Year
  Sex: Male
  Weight: 100 kg

DRUGS (9)
  1. REMICADE [Suspect]
     Indication: COLITIS ULCERATIVE
     Route: 042
     Dates: start: 20110927
  2. REMICADE [Suspect]
     Indication: COLITIS ULCERATIVE
     Dosage: 7TH INFUSION
     Route: 042
     Dates: start: 20120410
  3. REMICADE [Suspect]
     Indication: COLITIS ULCERATIVE
     Dosage: 6TH INFUSION
     Route: 042
     Dates: start: 20120214
  4. REMICADE [Suspect]
     Indication: COLITIS ULCERATIVE
     Route: 042
     Dates: start: 20111206
  5. REMICADE [Suspect]
     Indication: COLITIS ULCERATIVE
     Dosage: LAST INFUSION
     Route: 042
     Dates: start: 20121227
  6. REMICADE [Suspect]
     Indication: COLITIS ULCERATIVE
     Dosage: 10TH INFUSION
     Route: 042
     Dates: start: 20121018
  7. REMICADE [Suspect]
     Indication: COLITIS ULCERATIVE
     Dosage: 9TH INFUSION
     Route: 042
     Dates: start: 20120823
  8. REMICADE [Suspect]
     Indication: COLITIS ULCERATIVE
     Dosage: 8TH INFUSION
     Route: 042
     Dates: start: 20120620
  9. VALTREX [Concomitant]
     Route: 065

REACTIONS (7)
  - Drug specific antibody present [Unknown]
  - Polyarthritis [Not Recovered/Not Resolved]
  - Grip strength decreased [Not Recovered/Not Resolved]
  - Local swelling [Not Recovered/Not Resolved]
  - Pain in extremity [Not Recovered/Not Resolved]
  - Paraesthesia [Not Recovered/Not Resolved]
  - Drug ineffective [Unknown]
